FAERS Safety Report 5699581-X (Version None)
Quarter: 2008Q2

REPORT INFORMATION
  Report Type: 
  Country: None (occurrence: None)
  Receive Date: 20080410
  Receipt Date: 20080331
  Transmission Date: 20081010
  Serious: Yes (Congenital Anomaly)
  Sender: FDA-Public Use
  Company Number: GB-TEVA-169602ISR

PATIENT

DRUGS (1)
  1. ONDANSETRON [Suspect]
     Indication: VOMITING
     Route: 064
     Dates: start: 20070816, end: 20071127

REACTIONS (1)
  - TALIPES [None]
